FAERS Safety Report 8969060 (Version 1)
Quarter: 2012Q4

REPORT INFORMATION
  Report Type: Spontaneous
  Country: NL (occurrence: None)
  Receive Date: 20121210
  Receipt Date: 20121210
  Transmission Date: 20130627
  Serious: Yes (Death)
  Sender: FDA-Public Use
  Company Number: 2012-4052

PATIENT
  Age: 78 Year
  Sex: Female

DRUGS (1)
  1. SOMATULINE [Suspect]
     Indication: ACROMEGALY
     Dosage: 120 mg (120 mg, 1 in 28 d), subcutaneous
     Route: 058
     Dates: start: 20110418, end: 20120904

REACTIONS (4)
  - Peritonitis [None]
  - Gastrointestinal disorder [None]
  - Malaise [None]
  - Peritoneal dialysis [None]
